FAERS Safety Report 14320573 (Version 1)
Quarter: 2017Q4

REPORT INFORMATION
  Report Type: Spontaneous
  Country: US (occurrence: US)
  Receive Date: 20171222
  Receipt Date: 20171222
  Transmission Date: 20180321
  Serious: Yes (Disabling, Other)
  Sender: FDA-Public Use
  Company Number: None

PATIENT
  Age: 33 Year
  Sex: Female
  Weight: 51.75 kg

DRUGS (4)
  1. OCREVUS [Suspect]
     Active Substance: OCRELIZUMAB
     Indication: MULTIPLE SCLEROSIS
     Route: 042
     Dates: start: 20170708, end: 20170722
  2. VSL-3 PROBIOTIC [Concomitant]
  3. BIOTIN [Concomitant]
     Active Substance: BIOTIN
  4. MULTI-VITAMIN [Concomitant]
     Active Substance: .ALPHA.-TOCOPHEROL ACETATE, DL-\ASCORBIC ACID\CYANOCOBALAMIN\FLUORIDE ION\FOLIC ACID\NIACIN\PYRIDOXINE\RIBOFLAVIN\THIAMINE\VITAMIN A\VITAMIN D

REACTIONS (8)
  - Fatigue [None]
  - Alopecia [None]
  - Oral candidiasis [None]
  - Candida infection [None]
  - Onychomycosis [None]
  - Clumsiness [None]
  - Systemic mycosis [None]
  - Rash [None]

NARRATIVE: CASE EVENT DATE: 20170901
